FAERS Safety Report 11745439 (Version 3)
Quarter: 2016Q4

REPORT INFORMATION
  Report Type: Report from Study
  Country: US (occurrence: US)
  Receive Date: 20151117
  Receipt Date: 20161228
  Transmission Date: 20170206
  Serious: Yes (Hospitalization, Other)
  Sender: FDA-Public Use
  Company Number: PHEH2015US023095

PATIENT
  Age: 41 Year
  Sex: Female
  Weight: 81.63 kg

DRUGS (2)
  1. COSENTYX [Suspect]
     Active Substance: SECUKINUMAB
     Indication: PSORIASIS
     Dosage: 300 MG, QMO
     Route: 058
     Dates: start: 20150402, end: 201509
  2. COSENTYX [Suspect]
     Active Substance: SECUKINUMAB
     Dosage: 300 MG, QMO
     Route: 058
     Dates: start: 20160715

REACTIONS (4)
  - Gestational hypertension [Unknown]
  - Gestational diabetes [Unknown]
  - Maternal exposure during pregnancy [Recovered/Resolved]
  - Preterm premature rupture of membranes [Unknown]

NARRATIVE: CASE EVENT DATE: 201509
